FAERS Safety Report 9855261 (Version 1)
Quarter: 2013Q4

REPORT INFORMATION
  Report Type: Spontaneous
  Country: US (occurrence: None)
  Receive Date: 20131226
  Receipt Date: 20131226
  Transmission Date: 20140711
  Serious: Yes (Other)
  Sender: FDA-Public Use
  Company Number: PHEH2013US0171120

PATIENT
  Sex: Female

DRUGS (5)
  1. GILENYA (FINGOLIMOD) CAPSULE, 0.5MG [Suspect]
     Indication: RELAPSING-REMITTING MULTIPLE SCLEROSIS
     Route: 048
     Dates: start: 20130717
  2. PROVIGIL (MODAFINIL) [Concomitant]
  3. IBUPROFEN (IBUPROFEN) [Concomitant]
  4. CITALOPRAM (CITALOPRAM) [Concomitant]
  5. PREVACID (LANSOPRAZOLE) [Concomitant]

REACTIONS (3)
  - Diarrhoea [None]
  - Abdominal discomfort [None]
  - Prescribed underdose [None]
